FAERS Safety Report 16983514 (Version 1)
Quarter: 2019Q4

REPORT INFORMATION
  Report Type: Spontaneous
  Country: US (occurrence: US)
  Receive Date: 20190917
  Receipt Date: 20190917
  Transmission Date: 20200122
  Serious: Yes (Death)
  Sender: FDA-Public Use
  Company Number: None

PATIENT
  Age: 62 Year
  Sex: Female
  Weight: 70.1 kg

DRUGS (2)
  1. NO DRUG NAME [Concomitant]
  2. KYMRIAH [Suspect]
     Active Substance: TISAGENLECLEUCEL
     Indication: DIFFUSE LARGE B-CELL LYMPHOMA
     Dosage: ?          OTHER DOSE:1.4 X 10^8;OTHER ROUTE:INTRAVENOUS INFUSION?
     Dates: start: 20190821

REACTIONS (47)
  - Cognitive disorder [None]
  - Mental status changes [None]
  - Acute kidney injury [None]
  - Pupils unequal [None]
  - Tachypnoea [None]
  - Muscular weakness [None]
  - Acute myocardial infarction [None]
  - Bradycardia [None]
  - Dysgraphia [None]
  - Blood lactic acid increased [None]
  - Haemoglobin decreased [None]
  - Electrocardiogram T wave abnormal [None]
  - Subclavian artery thrombosis [None]
  - Calcium ionised decreased [None]
  - Haemothorax [None]
  - Oxygen saturation decreased [None]
  - Continuous haemodiafiltration [None]
  - Blood fibrinogen increased [None]
  - Pleural effusion [None]
  - Heart rate increased [None]
  - Atrial fibrillation [None]
  - Tachycardia [None]
  - Pulse absent [None]
  - Peripheral artery thrombosis [None]
  - Arterial occlusive disease [None]
  - Pulmonary thrombosis [None]
  - Serum ferritin increased [None]
  - Pyrexia [None]
  - Hypotension [None]
  - Haemophagocytic lymphohistiocytosis [None]
  - Electroencephalogram abnormal [None]
  - Lymphocytosis [None]
  - Hypoaesthesia [None]
  - Pulse abnormal [None]
  - Spinal cord infarction [None]
  - Pulmonary haemorrhage [None]
  - Hypertension [None]
  - Fatigue [None]
  - Mobility decreased [None]
  - Aortic thrombosis [None]
  - Vertebral artery thrombosis [None]
  - Pulmonary alveolar haemorrhage [None]
  - Cytokine release syndrome [None]
  - Acidosis [None]
  - Anuria [None]
  - Thrombocytopenia [None]
  - Haemoptysis [None]

NARRATIVE: CASE EVENT DATE: 20190905
